FAERS Safety Report 7693421-5 (Version None)
Quarter: 2011Q3

REPORT INFORMATION
  Report Type: 
  Country: None (occurrence: None)
  Receive Date: 20110816
  Receipt Date: 20110802
  Transmission Date: 20111222
  Serious: Yes (Other)
  Sender: FDA-Public Use
  Company Number: AUR-APL-2011-04515

PATIENT
  Age: 64 Year
  Sex: Female

DRUGS (3)
  1. LAMOTRIGINE [Suspect]
     Indication: DEPRESSION
  2. RANITIDINE [Concomitant]
  3. VENLAFAXINE [Concomitant]

REACTIONS (5)
  - TOXIC SKIN ERUPTION [None]
  - DRUG ERUPTION [None]
  - PRURITUS [None]
  - GENERALISED ERYTHEMA [None]
  - PAPULE [None]
